FAERS Safety Report 22340183 (Version 2)
Quarter: 2023Q2

REPORT INFORMATION
  Report Type: Report from Study
  Country: RU (occurrence: None)
  Receive Date: 20230518
  Receipt Date: 20230526
  Transmission Date: 20230722
  Serious: Yes (Other)
  Sender: FDA-Public Use
  Company Number: 2023A112065

PATIENT
  Age: 12 Year
  Sex: Male

DRUGS (3)
  1. CILGAVIMAB\TIXAGEVIMAB [Suspect]
     Active Substance: CILGAVIMAB\TIXAGEVIMAB
     Indication: COVID-19 prophylaxis
     Dosage: TWO CONSECUTIVE INJECTIONS OF EACH COMPONENT AT A DOSE OF 300 MG (150 MG OF EACH COMPONENT), 600...
     Route: 030
  2. METHYLPREDNISOLONE [Concomitant]
     Active Substance: METHYLPREDNISOLONE
     Dosage: 0.1 MG/KG/DAY PER OS,
     Route: 048
  3. ETANERCEPT [Concomitant]
     Active Substance: ETANERCEPT
     Dosage: 0/8 MG/KG ONES PER WEEK FOR 12 MONTHS.
     Route: 058

REACTIONS (5)
  - Leukopenia [Unknown]
  - Thrombocytopenia [Unknown]
  - COVID-19 [Unknown]
  - Drug ineffective [Unknown]
  - Off label use [Unknown]
